FAERS Safety Report 17533935 (Version 1)
Quarter: 2020Q1

REPORT INFORMATION
  Report Type: Spontaneous
  Country: US (occurrence: US)
  Receive Date: 20200312
  Receipt Date: 20200312
  Transmission Date: 20200409
  Serious: No
  Sender: FDA-Public Use
  Company Number: US-THERATECHNOLOGIES INC.-2020-THE-TES-000055

PATIENT
  Sex: Male

DRUGS (5)
  1. BICTEGRAVIR;EMTRICITABINE;TENOFOVIR ALAFENAMI [Concomitant]
     Active Substance: BICTEGRAVIR\EMTRICITABINE\TENOFOVIR ALAFENAMIDE
  2. WELLBUTRIN [Concomitant]
     Active Substance: BUPROPION HYDROCHLORIDE
  3. SELZENTRY [Concomitant]
     Active Substance: MARAVIROC
  4. LIPITOR [Concomitant]
     Active Substance: ATORVASTATIN CALCIUM
  5. EGRIFTA [Suspect]
     Active Substance: TESAMORELIN ACETATE
     Indication: PRODUCT USED FOR UNKNOWN INDICATION
     Dosage: IN CYCLES (90 DAYS ON,THEN TAKE A MONTH OFF)
     Route: 058
     Dates: start: 2019

REACTIONS (3)
  - Joint stiffness [Unknown]
  - Intentional product misuse [Unknown]
  - Joint swelling [Unknown]
